FAERS Safety Report 5053965-1 (Version None)
Quarter: 2006Q3

REPORT INFORMATION
  Report Type: 
  Country: None (occurrence: None)
  Receive Date: 20060718
  Receipt Date: 20060405
  Transmission Date: 20061208
  Serious: Yes (Hospitalization)
  Sender: FDA-Public Use
  Company Number: 2006UW10441

PATIENT
  Age: 30 Year
  Sex: Female

DRUGS (4)
  1. SEROQUEL [Suspect]
     Dates: start: 20060320
  2. PLACEBO [Suspect]
     Indication: BIPOLAR DISORDER
     Route: 048
     Dates: start: 20060306, end: 20060319
  3. PLACEBO [Suspect]
     Indication: DEPRESSION
     Route: 048
     Dates: start: 20060306, end: 20060319
  4. STUDY PROCEDURE [Suspect]
     Indication: BIPOLAR DISORDER

REACTIONS (1)
  - BIPOLAR DISORDER [None]
